FAERS Safety Report 6950708-9 (Version None)
Quarter: 2010Q3

REPORT INFORMATION
  Report Type: 
  Country: None (occurrence: None)
  Receive Date: 20100828
  Receipt Date: 20100224
  Transmission Date: 20110219
  Serious: No
  Sender: FDA-Public Use
  Company Number: US-ABBOTT-10P-163-0628419-00

PATIENT
  Sex: Female
  Weight: 99.88 kg

DRUGS (7)
  1. NIASPAN [Suspect]
     Indication: LOW DENSITY LIPOPROTEIN INCREASED
     Route: 048
     Dates: start: 20090701
  2. NIASPAN [Suspect]
     Indication: BLOOD TRIGLYCERIDES INCREASED
  3. LASIX [Concomitant]
     Indication: PRODUCT USED FOR UNKNOWN INDICATION
     Route: 048
  4. SOTALOL HCL [Concomitant]
     Indication: PRODUCT USED FOR UNKNOWN INDICATION
     Route: 048
  5. LISINOPRIL [Concomitant]
     Indication: PRODUCT USED FOR UNKNOWN INDICATION
     Route: 048
  6. PRISTIQ [Concomitant]
     Indication: PRODUCT USED FOR UNKNOWN INDICATION
     Route: 048
  7. SLOW MAG [Concomitant]
     Indication: PRODUCT USED FOR UNKNOWN INDICATION
     Route: 048

REACTIONS (4)
  - BURNING SENSATION [None]
  - ERYTHEMA [None]
  - FLUSHING [None]
  - PRURITUS [None]
